FAERS Safety Report 15933324 (Version 1)
Quarter: 2019Q1

REPORT INFORMATION
  Report Type: Spontaneous
  Country: HU (occurrence: HU)
  Receive Date: 20190207
  Receipt Date: 20190207
  Transmission Date: 20190417
  Serious: Yes (Hospitalization)
  Sender: FDA-Public Use
  Company Number: HU-B.I. PHARMACEUTICALS,INC./RIDGEFIELD-2019-BI-004740

PATIENT
  Age: 59 Year
  Sex: Female

DRUGS (3)
  1. TUJEO [Concomitant]
     Indication: PRODUCT USED FOR UNKNOWN INDICATION
     Route: 065
  2. SYNJARDY [Suspect]
     Active Substance: EMPAGLIFLOZIN\METFORMIN HYDROCHLORIDE
     Indication: PRODUCT USED FOR UNKNOWN INDICATION
     Route: 065
     Dates: start: 201806, end: 201811
  3. APIDRA [Concomitant]
     Active Substance: INSULIN GLULISINE
     Indication: PRODUCT USED FOR UNKNOWN INDICATION
     Route: 065

REACTIONS (1)
  - Perineal abscess [Recovered/Resolved]

NARRATIVE: CASE EVENT DATE: 2018
